FAERS Safety Report 12404112 (Version 1)
Quarter: 2016Q2

REPORT INFORMATION
  Report Type: Spontaneous
  Country: US (occurrence: US)
  Receive Date: 20160525
  Receipt Date: 20160525
  Transmission Date: 20160815
  Serious: No
  Sender: FDA-Public Use
  Company Number: US-SA-2015SA188252

PATIENT
  Age: 50 Year
  Sex: Male

DRUGS (1)
  1. ELOXATIN [Suspect]
     Active Substance: OXALIPLATIN
     Indication: COLON CANCER
     Dosage: ROUTE: IVPB
     Dates: start: 20150716, end: 20151116

REACTIONS (8)
  - Palpitations [Recovering/Resolving]
  - Feeling abnormal [Recovering/Resolving]
  - Eructation [Recovering/Resolving]
  - Yawning [Recovering/Resolving]
  - Tearfulness [Recovering/Resolving]
  - Nausea [Recovering/Resolving]
  - Paraesthesia [Recovering/Resolving]
  - Defaecation urgency [Recovering/Resolving]
